FAERS Safety Report 6986846-4 (Version None)
Quarter: 2010Q3

REPORT INFORMATION
  Report Type: 
  Country: None (occurrence: None)
  Receive Date: 20100915
  Receipt Date: 20090805
  Transmission Date: 20110219
  Serious: No
  Sender: FDA-Public Use
  Company Number: US-WYE-H10504309

PATIENT
  Age: 75 Year
  Sex: Male

DRUGS (2)
  1. PRISTIQ [Suspect]
     Indication: MAJOR DEPRESSION
     Route: 048
  2. WELLBUTRIN XL [Concomitant]

REACTIONS (1)
  - DIZZINESS [None]
